FAERS Safety Report 5768979-3 (Version None)
Quarter: 2008Q2

REPORT INFORMATION
  Report Type: 
  Country: None (occurrence: None)
  Receive Date: 20080612
  Receipt Date: 20080317
  Transmission Date: 20081010
  Serious: No
  Sender: FDA-Public Use
  Company Number: US-ABBOTT-08P-163-0443016-00

PATIENT
  Sex: Male
  Weight: 77.18 kg

DRUGS (3)
  1. HUMIRA [Suspect]
     Indication: CROHN'S DISEASE
     Dosage: LOADING DOSE
     Route: 058
     Dates: start: 20080201, end: 20080201
  2. HUMIRA [Suspect]
     Dosage: LOADING DOSE
     Route: 058
     Dates: start: 20080215, end: 20080215
  3. HUMIRA [Suspect]
     Route: 058
     Dates: start: 20080229

REACTIONS (1)
  - ACCIDENTAL EXPOSURE [None]
